FAERS Safety Report 10535662 (Version 2)
Quarter: 2014Q4

REPORT INFORMATION
  Report Type: Spontaneous
  Country: US (occurrence: US)
  Receive Date: 20141022
  Receipt Date: 20141022
  Transmission Date: 20150529
  Serious: Yes (Hospitalization)
  Sender: FDA-Public Use
  Company Number: US-RECKITT BENCKISER PHARMACEUTICAL, INC-RB-57271-2013

PATIENT

DRUGS (6)
  1. XANAX [Suspect]
     Active Substance: ALPRAZOLAM
     Indication: PRODUCT USED FOR UNKNOWN INDICATION
     Dosage: DOSING DETAILS UNKNOWN, PATIENT STATED HE TOOK LARGE AMOUNTS
     Route: 065
     Dates: start: 2013, end: 2013
  2. BENZODIAZEPINES [Suspect]
     Active Substance: BENZODIAZEPINE
     Indication: SUBSTANCE USE
     Dosage: DOSING DETAILS UNKNOWN
     Route: 048
     Dates: end: 201304
  3. SUBOXONE [Suspect]
     Active Substance: BUPRENORPHINE HYDROCHLORIDE\NALOXONE HYDROCHLORIDE
     Dosage: DOSING INFORMATION UNKNOWN, BUYING OFF THE STREET AND TAKING VARIOUS DOSES
     Route: 060
     Dates: start: 201304
  4. SUBOXONE [Suspect]
     Active Substance: BUPRENORPHINE HYDROCHLORIDE\NALOXONE HYDROCHLORIDE
     Indication: DRUG DEPENDENCE
     Route: 060
     Dates: start: 2006
  5. KLONOPIN [Suspect]
     Active Substance: CLONAZEPAM
     Indication: ANXIETY
     Dosage: DOSING DETAILS UNKNOWN
     Route: 048
     Dates: start: 2010
  6. SUBOXONE [Suspect]
     Active Substance: BUPRENORPHINE HYDROCHLORIDE\NALOXONE HYDROCHLORIDE
     Indication: DRUG DEPENDENCE
     Dosage: SUBOXONE FILM; UNKNOWN DOSING DETAILS, CUTTING FILM TO ACHIEVE VARIOUS DOSES
     Route: 060
     Dates: end: 201304

REACTIONS (7)
  - Road traffic accident [Recovered/Resolved]
  - Substance abuse [Not Recovered/Not Resolved]
  - Drug detoxification [Recovered/Resolved]
  - Underdose [Recovered/Resolved]
  - Drug abuse [Recovered/Resolved]
  - Wrong technique in drug usage process [Not Recovered/Not Resolved]
  - Drug withdrawal syndrome [Not Recovered/Not Resolved]

NARRATIVE: CASE EVENT DATE: 201301
